FAERS Safety Report 5823442-6 (Version None)
Quarter: 2008Q3

REPORT INFORMATION
  Report Type: 
  Country: None (occurrence: None)
  Receive Date: 20080725
  Receipt Date: 20071007
  Transmission Date: 20090109
  Serious: No
  Sender: FDA-Public Use
  Company Number: US-ABBOTT-07P-163-0420282-00

PATIENT

DRUGS (2)
  1. NORVIR [Suspect]
     Indication: DRUG USE FOR UNKNOWN INDICATION
  2. NORVIR [Suspect]

REACTIONS (7)
  - DYSPNOEA [None]
  - HYPERHIDROSIS [None]
  - MEDICATION ERROR [None]
  - PAIN [None]
  - PYREXIA [None]
  - SKIN INDURATION [None]
  - URTICARIA [None]
